FAERS Safety Report 15555918 (Version 1)
Quarter: 2018Q4

REPORT INFORMATION
  Report Type: Spontaneous
  Country: US (occurrence: US)
  Receive Date: 20181023
  Receipt Date: 20181023
  Transmission Date: 20190205
  Serious: Yes (Hospitalization)
  Sender: FDA-Public Use
  Company Number: None

PATIENT
  Age: 87 Year
  Sex: Female
  Weight: 69.9 kg

DRUGS (10)
  1. ELIQUIS [Suspect]
     Active Substance: APIXABAN
     Indication: ATRIAL FIBRILLATION
     Route: 048
  2. APAP [Concomitant]
     Active Substance: ACETAMINOPHEN
  3. LASIX [Concomitant]
     Active Substance: FUROSEMIDE
  4. ALLOPURINOL. [Concomitant]
     Active Substance: ALLOPURINOL
  5. PREMARIN [Concomitant]
     Active Substance: ESTROGENS, CONJUGATED
  6. COZAAR [Concomitant]
     Active Substance: LOSARTAN POTASSIUM
  7. PRILOSEC [Concomitant]
     Active Substance: OMEPRAZOLE MAGNESIUM
  8. ZOCOR [Concomitant]
     Active Substance: SIMVASTATIN
  9. ALDACTONE [Concomitant]
     Active Substance: SPIRONOLACTONE
  10. VENLAFAXINE [Concomitant]
     Active Substance: VENLAFAXINE HYDROCHLORIDE

REACTIONS (2)
  - Gastrointestinal haemorrhage [None]
  - Occult blood positive [None]
